FAERS Safety Report 25960368 (Version 3)
Quarter: 2025Q4

REPORT INFORMATION
  Report Type: Spontaneous
  Country: EU (occurrence: EU)
  Receive Date: 20251026
  Receipt Date: 20251202
  Transmission Date: 20260117
  Serious: Yes (Death)
  Sender: BIOGEN
  Company Number: EU-BIOGEN-2087579

PATIENT
  Age: 69 Year
  Sex: Female

DRUGS (1)
  1. TOFERSEN [Suspect]
     Active Substance: TOFERSEN
     Indication: Amyotrophic lateral sclerosis
     Dosage: EXPIRY DATE: 31 JAN 2029

REACTIONS (1)
  - Amyotrophic lateral sclerosis [Fatal]
